FAERS Safety Report 8877088 (Version 1)
Quarter: 2012Q4

REPORT INFORMATION
  Report Type: 
  Country: CA (occurrence: CA)
  Receive Date: 20121030
  Receipt Date: 20121030
  Transmission Date: 20130627
  Serious: Yes (Other)
  Sender: FDA-Public Use
  Company Number: PHHY2007CA03744

PATIENT
  Sex: Male

DRUGS (1)
  1. SANDOSTATIN LAR [Suspect]
     Indication: RECTAL CANCER
     Dosage: 30 mg, Every 4 weeks
     Route: 030
     Dates: start: 20070730

REACTIONS (10)
  - Diarrhoea [Not Recovered/Not Resolved]
  - Decreased activity [Unknown]
  - Restlessness [Unknown]
  - Weight increased [Unknown]
  - Blood pressure systolic increased [Unknown]
  - Fatigue [Unknown]
  - Decreased appetite [Unknown]
  - Asthenia [Unknown]
  - Heart rate decreased [Unknown]
  - Heart rate increased [Unknown]
